FAERS Safety Report 6904245-8 (Version None)
Quarter: 2010Q3

REPORT INFORMATION
  Report Type: 
  Country: None (occurrence: None)
  Receive Date: 20100804
  Receipt Date: 20090409
  Transmission Date: 20110219
  Serious: No
  Sender: FDA-Public Use
  Company Number: US-PFIZER INC-2009196969

PATIENT
  Age: 67 Year
  Sex: Male
  Weight: 89.4 kg

DRUGS (2)
  1. LYRICA [Suspect]
     Indication: PAIN IN EXTREMITY
     Dosage: 75 MG, 2X/DAY
     Dates: start: 20090408
  2. WARFARIN SODIUM [Concomitant]
     Dosage: UNK

REACTIONS (2)
  - DIZZINESS [None]
  - MALAISE [None]
